FAERS Safety Report 17589143 (Version 1)
Quarter: 2020Q1

REPORT INFORMATION
  Report Type: Spontaneous
  Country: US (occurrence: US)
  Receive Date: 20200327
  Receipt Date: 20200327
  Transmission Date: 20200409
  Serious: No
  Sender: FDA-Public Use
  Company Number: US-BAUSCH-BL-2020-008732

PATIENT
  Age: 81 Year
  Sex: Female

DRUGS (1)
  1. VYZULTA [Suspect]
     Active Substance: LATANOPROSTENE BUNOD
     Indication: PRODUCT USED FOR UNKNOWN INDICATION
     Dosage: PATIENT TRIED WEEK OR TWO WEEKS
     Route: 047

REACTIONS (4)
  - Visual impairment [Unknown]
  - Drug intolerance [Unknown]
  - Vision blurred [Unknown]
  - Eye irritation [Unknown]
